FAERS Safety Report 20974457 (Version 3)
Quarter: 2022Q3

REPORT INFORMATION
  Report Type: Report from Study
  Country: US (occurrence: US)
  Receive Date: 20220617
  Receipt Date: 20220822
  Transmission Date: 20221027
  Serious: Yes (Hospitalization, Other)
  Sender: FDA-Public Use
  Company Number: US-GILEAD-2022-0586365

PATIENT
  Age: 71 Year
  Sex: Female
  Weight: 73.016 kg

DRUGS (2)
  1. AMBRISENTAN [Suspect]
     Active Substance: AMBRISENTAN
     Indication: Pulmonary arterial hypertension
     Dosage: 5 MG, QD
     Route: 048
     Dates: start: 20220120
  2. ELIQUIS [Concomitant]
     Active Substance: APIXABAN

REACTIONS (8)
  - Diarrhoea [Unknown]
  - Metabolic acidosis [Unknown]
  - Hyponatraemia [Recovered/Resolved]
  - Acute kidney injury [Recovered/Resolved]
  - Hypokalaemia [Unknown]
  - Chronic obstructive pulmonary disease [Unknown]
  - Renal disorder [Recovered/Resolved]
  - Blood sodium decreased [Recovered/Resolved]

NARRATIVE: CASE EVENT DATE: 20220720
